FAERS Safety Report 9753117 (Version 2)
Quarter: 2015Q3

REPORT INFORMATION
  Report Type: Spontaneous
  Country: US (occurrence: US)
  Receive Date: 20131213
  Receipt Date: 20150805
  Transmission Date: 20151125
  Serious: No
  Sender: FDA-Public Use
  Company Number: US-GILEAD-2010-0027314

PATIENT
  Age: 82 Year
  Sex: Female
  Weight: 54.43 kg

DRUGS (14)
  1. COUMADIN [Concomitant]
     Active Substance: WARFARIN SODIUM
  2. NOVOLOG [Concomitant]
     Active Substance: INSULIN ASPART
  3. TYLENOL [Concomitant]
     Active Substance: ACETAMINOPHEN
  4. HYDRALAZINE [Concomitant]
     Active Substance: HYDRALAZINE HYDROCHLORIDE
  5. SIMVASTATIN. [Concomitant]
     Active Substance: SIMVASTATIN
  6. CYMBALTA [Concomitant]
     Active Substance: DULOXETINE HYDROCHLORIDE
  7. FLOVENT [Concomitant]
     Active Substance: FLUTICASONE PROPIONATE
  8. LETAIRIS [Suspect]
     Active Substance: AMBRISENTAN
     Indication: PULMONARY ARTERIAL HYPERTENSION
     Route: 048
     Dates: start: 20091119, end: 20100214
  9. ATROVENT [Concomitant]
     Active Substance: IPRATROPIUM BROMIDE
  10. LANTUS [Concomitant]
     Active Substance: INSULIN GLARGINE
  11. DIGOXIN. [Concomitant]
     Active Substance: DIGOXIN
  12. AMIODARONE [Concomitant]
     Active Substance: AMIODARONE
  13. NITROGLYCERIN. [Concomitant]
     Active Substance: NITROGLYCERIN
  14. LASIX [Concomitant]
     Active Substance: FUROSEMIDE

REACTIONS (2)
  - Palpitations [Unknown]
  - Hot flush [Unknown]
